FAERS Safety Report 9070961 (Version 1)
Quarter: 2013Q1

REPORT INFORMATION
  Report Type: Report from Study
  Country: JP (occurrence: JP)
  Receive Date: 20130129
  Receipt Date: 20130129
  Transmission Date: 20140127
  Serious: Yes (Other)
  Sender: FDA-Public Use
  Company Number: JP-GLAXOSMITHKLINE-B0859991A

PATIENT
  Age: 45 None
  Sex: Male
  Weight: 55 kg

DRUGS (10)
  1. PAXIL [Suspect]
     Indication: SOCIAL PHOBIA
     Route: 048
     Dates: start: 20100424, end: 20100514
  2. PAXIL [Suspect]
     Indication: SOCIAL PHOBIA
     Dosage: 10MG TWICE PER DAY
     Route: 048
     Dates: start: 20100515, end: 20100625
  3. PAXIL [Suspect]
     Indication: SOCIAL PHOBIA
     Dosage: 10MG PER DAY
     Route: 048
     Dates: start: 20100626, end: 20100723
  4. PAXIL [Suspect]
     Indication: SOCIAL PHOBIA
     Dosage: 5MG PER DAY
     Route: 048
     Dates: start: 20100724, end: 20100806
  5. RIZE [Suspect]
     Indication: SOCIAL PHOBIA
     Route: 048
     Dates: start: 20100424, end: 20100709
  6. RIZE [Suspect]
     Indication: SOCIAL PHOBIA
     Route: 048
     Dates: start: 20100710
  7. LULLAN [Concomitant]
     Indication: SOCIAL PHOBIA
     Route: 048
     Dates: start: 20100703
  8. GASMOTIN [Concomitant]
     Indication: PROPHYLAXIS
     Route: 048
     Dates: start: 20100424, end: 20100709
  9. GASMOTIN [Concomitant]
     Indication: PROPHYLAXIS
     Route: 048
     Dates: start: 20100710
  10. GOODMIN [Concomitant]
     Indication: SOCIAL PHOBIA
     Route: 048
     Dates: start: 20100327

REACTIONS (2)
  - Bipolar disorder [Recovering/Resolving]
  - Somnolence [Recovering/Resolving]
